FAERS Safety Report 4686981-X (Version None)
Quarter: 2005Q2

REPORT INFORMATION
  Report Type: 
  Country: None (occurrence: None)
  Receive Date: 20050608
  Receipt Date: 20050523
  Transmission Date: 20051028
  Serious: Yes (Other)
  Sender: FDA-Public Use
  Company Number: 2005079847

PATIENT
  Sex: Female
  Weight: 99.7913 kg

DRUGS (4)
  1. DETROL LA [Suspect]
     Indication: MICTURITION DISORDER
     Dosage: ORAL
     Dates: start: 20020101
  2. ARTHROTEC [Suspect]
     Indication: ARTHRALGIA
  3. ARTHROTEC [Suspect]
     Indication: OEDEMA PERIPHERAL
  4. DIOVANE (VALSARTAN) [Concomitant]

REACTIONS (9)
  - ABDOMINAL PAIN [None]
  - BACK PAIN [None]
  - BLOOD CHOLESTEROL INCREASED [None]
  - DRUG EFFECT DECREASED [None]
  - DRUG INEFFECTIVE [None]
  - NERVOUS SYSTEM DISORDER [None]
  - RASH [None]
  - TENSION [None]
  - TREATMENT NONCOMPLIANCE [None]
